FAERS Safety Report 5693168-0 (Version None)
Quarter: 2008Q2

REPORT INFORMATION
  Report Type: 
  Country: None (occurrence: None)
  Receive Date: 20080403
  Receipt Date: 20080324
  Transmission Date: 20081010
  Serious: Yes (Other)
  Sender: FDA-Public Use
  Company Number: US-BAYER-200812907NA

PATIENT
  Age: 68 Year
  Sex: Male

DRUGS (11)
  1. AVELOX [Suspect]
     Indication: PNEUMONIA
     Route: 048
     Dates: start: 20080101, end: 20080201
  2. AVELOX [Suspect]
     Route: 048
     Dates: start: 20050101, end: 20050301
  3. ASPIRIN [Concomitant]
  4. POTASSIUM CHLORIDE [Concomitant]
  5. CRESTOR [Concomitant]
  6. LASIX [Concomitant]
     Dosage: TOTAL DAILY DOSE: 80 MG
  7. MULTI-VITAMIN [Concomitant]
  8. TOPROL-XL [Concomitant]
     Dates: start: 20050101
  9. FLOMAX [Concomitant]
     Dates: start: 20050101
  10. TRAMADOL HCL [Concomitant]
     Dates: start: 20050101
  11. GUAIFENESIN WITH DEXTROMETHORPHAN [Concomitant]
     Dates: start: 20050101

REACTIONS (2)
  - APHASIA [None]
  - CONVULSION [None]
